FAERS Safety Report 8049290-7 (Version None)
Quarter: 2012Q1

REPORT INFORMATION
  Report Type: 
  Country: None (occurrence: None)
  Receive Date: 20120117
  Receipt Date: 20120110
  Transmission Date: 20120608
  Serious: Yes (Other)
  Sender: FDA-Public Use
  Company Number: US-PFIZER INC-2011174798

PATIENT
  Sex: Male

DRUGS (1)
  1. SUTENT [Suspect]
     Indication: METASTATIC RENAL CELL CARCINOMA
     Dosage: 50 MG, 1X/DAY X 28 DAYS Q 42 DAYS
     Dates: start: 20110708

REACTIONS (9)
  - PAIN IN EXTREMITY [None]
  - HYPERTENSION [None]
  - CANDIDIASIS [None]
  - WEIGHT FLUCTUATION [None]
  - PARAESTHESIA [None]
  - FLATULENCE [None]
  - DECREASED APPETITE [None]
  - BACK PAIN [None]
  - DYSGEUSIA [None]
